FAERS Safety Report 4441110-2 (Version None)
Quarter: 2004Q3

REPORT INFORMATION
  Report Type: 
  Country: None (occurrence: None)
  Receive Date: 20040831
  Receipt Date: 20040309
  Transmission Date: 20050211
  Serious: Yes (Hospitalization, Other)
  Sender: FDA-Public Use
  Company Number: 20040300222

PATIENT
  Age: 78 Year
  Sex: Male

DRUGS (10)
  1. MIDAZOLAM [Suspect]
     Dosage: 1 MG ONCE IV
     Route: 042
  2. BUPIVACAINE [Concomitant]
  3. EPINEPHRINE [Concomitant]
  4. MORPHINE [Concomitant]
  5. THIOPENTAL SODIUM [Concomitant]
  6. ROCURONIUM [Concomitant]
  7. FENTANYL [Concomitant]
  8. PROPOFOL [Concomitant]
  9. DESFLURANE [Concomitant]
  10. NITROUS OXIDE [Concomitant]

REACTIONS (2)
  - AGITATION [None]
  - MYOCLONUS [None]
